FAERS Safety Report 4843633-0 (Version None)
Quarter: 2005Q4

REPORT INFORMATION
  Report Type: 
  Country: None (occurrence: None)
  Receive Date: 20051202
  Receipt Date: 20051123
  Transmission Date: 20060501
  Serious: Yes (Hospitalization)
  Sender: FDA-Public Use
  Company Number: FR-JNJFOC-20051105541

PATIENT
  Age: 89 Year
  Sex: Male

DRUGS (12)
  1. DURAGESIC-100 [Suspect]
     Indication: CANCER PAIN
     Route: 062
  2. TERCIAN [Suspect]
     Indication: DRUG USE FOR UNKNOWN INDICATION
     Route: 048
  3. CORDARONE [Concomitant]
     Route: 065
  4. STABLON [Concomitant]
     Route: 065
  5. ALLOPURINOL [Concomitant]
     Route: 065
  6. LASILIX [Concomitant]
     Route: 065
  7. DIFFU-K [Concomitant]
     Route: 065
  8. LEVOTHYROX [Concomitant]
     Route: 065
  9. IKOREL [Concomitant]
     Route: 065
  10. SERESTA [Concomitant]
     Route: 065
  11. XANAX [Concomitant]
     Route: 065
  12. FORLAX [Concomitant]
     Route: 065

REACTIONS (3)
  - ABDOMINAL DISTENSION [None]
  - CHOLECYSTITIS [None]
  - ILEUS [None]
